FAERS Safety Report 11646293 (Version 3)
Quarter: 2016Q4

REPORT INFORMATION
  Report Type: Spontaneous
  Country: US (occurrence: US)
  Receive Date: 20151020
  Receipt Date: 20161013
  Transmission Date: 20170206
  Serious: No
  Sender: FDA-Public Use
  Company Number: US-ROCHE-1617640

PATIENT
  Sex: Female

DRUGS (12)
  1. DYAZIDE [Concomitant]
     Active Substance: HYDROCHLOROTHIAZIDE\TRIAMTERENE
  2. SUDAFED (UNITED STATES) [Concomitant]
  3. VERAMYST [Concomitant]
     Active Substance: FLUTICASONE FUROATE
  4. PRILOSEC [Concomitant]
     Active Substance: OMEPRAZOLE MAGNESIUM
  5. TRAMADOL. [Concomitant]
     Active Substance: TRAMADOL
  6. PRAVASTATIN. [Concomitant]
     Active Substance: PRAVASTATIN
  7. ALLOPURINOL. [Concomitant]
     Active Substance: ALLOPURINOL
  8. ESBRIET [Suspect]
     Active Substance: PIRFENIDONE
     Indication: IDIOPATHIC PULMONARY FIBROSIS
     Dosage: 2 CAPSULES THRICE A DAY
     Route: 048
     Dates: start: 20150418
  9. BACTRIM [Concomitant]
     Active Substance: SULFAMETHOXAZOLE\TRIMETHOPRIM
  10. PROMETHAZINE [Concomitant]
     Active Substance: PROMETHAZINE\PROMETHAZINE HYDROCHLORIDE
  11. NEXIUM [Concomitant]
     Active Substance: ESOMEPRAZOLE MAGNESIUM
  12. KLOR-CON M10 [Concomitant]
     Active Substance: POTASSIUM CHLORIDE

REACTIONS (6)
  - Nausea [Unknown]
  - Fear [Unknown]
  - Diarrhoea [Unknown]
  - Dyspepsia [Unknown]
  - Haematochezia [Unknown]
  - Malaise [Unknown]
